FAERS Safety Report 4774506-X (Version None)
Quarter: 2005Q3

REPORT INFORMATION
  Report Type: 
  Country: None (occurrence: None)
  Receive Date: 20050920
  Receipt Date: 20050908
  Transmission Date: 20060218
  Serious: Yes (Other)
  Sender: FDA-Public Use
  Company Number: GXKR2005CZ01580

PATIENT
  Age: 58 Year
  Sex: Male

DRUGS (3)
  1. KETOPROFEN [Suspect]
     Indication: TENOSYNOVITIS
     Dosage: SEE IMAGE
     Dates: start: 20050816, end: 20050820
  2. KETOPROFEN [Suspect]
     Indication: TENOSYNOVITIS
     Dosage: SEE IMAGE
     Dates: start: 20050816, end: 20050820
  3. FLAVOBION (SILYBUM MARIANUM) [Concomitant]

REACTIONS (3)
  - DERMATITIS ALLERGIC [None]
  - PURPURA [None]
  - RASH [None]
